FAERS Safety Report 9469597 (Version 1)
Quarter: 2013Q3

REPORT INFORMATION
  Report Type: Spontaneous
  Country: CA (occurrence: CA)
  Receive Date: 20130822
  Receipt Date: 20130822
  Transmission Date: 20140515
  Serious: Yes (Disabling)
  Sender: FDA-Public Use
  Company Number: CA-BRISTOL-MYERS SQUIBB COMPANY-19190032

PATIENT
  Age: 60 Year
  Sex: Female

DRUGS (2)
  1. ONGLYZA TABS [Suspect]
     Indication: DIABETES MELLITUS
     Route: 048
     Dates: start: 201306
  2. METFORMIN HCL [Suspect]
     Dates: start: 201306

REACTIONS (3)
  - Pruritus [Unknown]
  - Pyrexia [Unknown]
  - Papule [Unknown]
